FAERS Safety Report 21067410 (Version 2)
Quarter: 2022Q4

REPORT INFORMATION
  Report Type: Spontaneous
  Country: US (occurrence: US)
  Receive Date: 20220712
  Receipt Date: 20221118
  Transmission Date: 20230113
  Serious: Yes (Other)
  Sender: FDA-Public Use
  Company Number: US-BRISTOL-MYERS SQUIBB COMPANY-2022-066625

PATIENT
  Age: 70 Year
  Sex: Female

DRUGS (2)
  1. REVLIMID [Suspect]
     Active Substance: LENALIDOMIDE
     Indication: Product used for unknown indication
     Route: 048
     Dates: start: 202002, end: 20221103
  2. REVLIMID [Suspect]
     Active Substance: LENALIDOMIDE
     Dosage: START DATE:09-NOV-2022
     Route: 048

REACTIONS (2)
  - Cataract [Unknown]
  - Cough [Unknown]

NARRATIVE: CASE EVENT DATE: 20220614
